FAERS Safety Report 8279151-X (Version None)
Quarter: 2012Q2

REPORT INFORMATION
  Report Type: 
  Country: None (occurrence: None)
  Receive Date: 20120412
  Receipt Date: 20110928
  Transmission Date: 20120825
  Serious: No
  Sender: FDA-Public Use
  Company Number: US-ASTRAZENECA-2011SE58402

PATIENT
  Age: 59 Year
  Sex: Female
  Weight: 124.7 kg

DRUGS (7)
  1. NEXIUM [Suspect]
     Indication: GASTROOESOPHAGEAL REFLUX DISEASE
     Route: 048
  2. LASIX [Concomitant]
  3. SEROQUEL [Suspect]
     Indication: SLEEP DISORDER
     Route: 048
  4. MICRO-K [Concomitant]
  5. SEROQUEL [Suspect]
     Indication: ANXIETY
     Route: 048
  6. METFORMIN HCL [Concomitant]
     Indication: DIABETES MELLITUS
  7. SYNTHROID [Concomitant]

REACTIONS (4)
  - THYROID FUNCTION TEST ABNORMAL [None]
  - OFF LABEL USE [None]
  - LIMB INJURY [None]
  - PAIN IN EXTREMITY [None]
